FAERS Safety Report 22725115 (Version 5)
Quarter: 2024Q1

REPORT INFORMATION
  Report Type: Spontaneous
  Country: US (occurrence: US)
  Receive Date: 20230719
  Receipt Date: 20240208
  Transmission Date: 20240410
  Serious: No
  Sender: FDA-Public Use
  Company Number: US-SA-SAC20230717000341

PATIENT
  Age: 43 Year
  Sex: Female

DRUGS (2)
  1. DUPIXENT [Suspect]
     Active Substance: DUPILUMAB
     Indication: Eczema
     Dosage: 600 MG, 1X
     Route: 058
     Dates: start: 20230707, end: 20230707
  2. DUPIXENT [Suspect]
     Active Substance: DUPILUMAB
     Dosage: 300 MG, QOW
     Route: 058
     Dates: start: 20230722

REACTIONS (10)
  - Skin lesion inflammation [Unknown]
  - Sleep disorder due to a general medical condition [Unknown]
  - Dermatitis [Unknown]
  - Hyperkeratosis [Unknown]
  - Pruritus [Unknown]
  - Injection site pain [Recovered/Resolved]
  - Eczema [Not Recovered/Not Resolved]
  - Acne [Not Recovered/Not Resolved]
  - Therapeutic response shortened [Not Recovered/Not Resolved]
  - Skin burning sensation [Recovered/Resolved]

NARRATIVE: CASE EVENT DATE: 20230101
